FAERS Safety Report 18385977 (Version 2)
Quarter: 2020Q4

REPORT INFORMATION
  Report Type: Report from Study
  Country: MX (occurrence: MX)
  Receive Date: 20201015
  Receipt Date: 20201020
  Transmission Date: 20210114
  Serious: Yes (Death, Hospitalization)
  Sender: FDA-Public Use
  Company Number: MX-BAYER-2020-222019

PATIENT
  Age: 18 Year
  Sex: Male

DRUGS (1)
  1. ADEMPAS [Suspect]
     Active Substance: RIOCIGUAT
     Indication: PULMONARY HYPERTENSION
     Dosage: 2.5 MG, TID
     Dates: start: 20200425, end: 20201010

REACTIONS (5)
  - Therapy interrupted [None]
  - Haemorrhoidal haemorrhage [None]
  - Fluid retention [None]
  - Oedema peripheral [None]
  - Death [Fatal]

NARRATIVE: CASE EVENT DATE: 20201001
